FAERS Safety Report 5322550-6 (Version None)
Quarter: 2007Q2

REPORT INFORMATION
  Report Type: 
  Country: None (occurrence: None)
  Receive Date: 20070511
  Receipt Date: 20070509
  Transmission Date: 20071010
  Serious: Yes (Hospitalization)
  Sender: FDA-Public Use
  Company Number: HQWYE116310MAY07

PATIENT
  Age: 22 Year
  Sex: Male
  Weight: 88 kg

DRUGS (7)
  1. TYGACIL [Suspect]
     Indication: STAPHYLOCOCCAL INFECTION
     Route: 042
     Dates: start: 20070426, end: 20070429
  2. TYGACIL [Suspect]
     Indication: SOFT TISSUE INFECTION
  3. TYGACIL [Suspect]
     Indication: NEUROLOGICAL INFECTION
  4. METRONIDAZOLE [Suspect]
     Indication: PSEUDOMEMBRANOUS COLITIS
     Route: 042
  5. KETOROLAC TROMETHAMINE [Concomitant]
  6. OMEPRAZOLE [Concomitant]
  7. PHENYTOIN [Concomitant]

REACTIONS (1)
  - PSEUDOMEMBRANOUS COLITIS [None]
